FAERS Safety Report 10230961 (Version 1)
Quarter: 2014Q2

REPORT INFORMATION
  Report Type: Spontaneous
  Country: US (occurrence: US)
  Receive Date: 20140611
  Receipt Date: 20140611
  Transmission Date: 20141212
  Serious: Yes (Hospitalization)
  Sender: FDA-Public Use
  Company Number: US-PFIZER INC-2014155270

PATIENT
  Age: 6 Year
  Sex: Male

DRUGS (2)
  1. XALKORI [Suspect]
     Dosage: 200 MG, 1X/DAY
     Dates: start: 201405
  2. ACCUTANE [Suspect]
     Dosage: UNK

REACTIONS (4)
  - Insomnia [Unknown]
  - Hallucination [Unknown]
  - Memory impairment [Unknown]
  - Constipation [Unknown]
